APPROVED DRUG PRODUCT: IPRATROPIUM BROMIDE
Active Ingredient: IPRATROPIUM BROMIDE
Strength: 0.02%
Dosage Form/Route: SOLUTION;INHALATION
Application: A076291 | Product #001
Applicant: WATSON LABORATORIES INC
Approved: May 9, 2005 | RLD: No | RS: No | Type: DISCN